FAERS Safety Report 19141120 (Version 1)
Quarter: 2021Q2

REPORT INFORMATION
  Report Type: Spontaneous
  Country: US (occurrence: US)
  Receive Date: 20210415
  Receipt Date: 20210415
  Transmission Date: 20210717
  Serious: No
  Sender: FDA-Public Use
  Company Number: US-IPSEN BIOPHARMACEUTICALS, INC.-2021-05970

PATIENT
  Age: 53 Year
  Sex: Female
  Weight: 64.9 kg

DRUGS (11)
  1. VITAMIN D3 [Concomitant]
     Active Substance: CHOLECALCIFEROL
     Dosage: 1 CAPSULE BY MOUTH
     Route: 048
  2. FLONASE [Concomitant]
     Active Substance: FLUTICASONE PROPIONATE
     Dosage: USE 2 SPRAYS IN EACH NOSTRIL AS NEEDED
     Route: 045
  3. ATIVAN [Concomitant]
     Active Substance: LORAZEPAM
     Dosage: 1 TABLET BY MOUTH AS NEEDED
     Route: 048
  4. SOMATULINE DEPOT [Suspect]
     Active Substance: LANREOTIDE ACETATE
     Indication: ACROMEGALY
     Route: 058
  5. LUTEIN [Concomitant]
     Active Substance: LUTEIN
     Dosage: 1 TABLET BY MOUTH
     Route: 048
  6. SOMATULINE DEPOT [Suspect]
     Active Substance: LANREOTIDE ACETATE
     Dosage: 120 MG ONCE IN 3 WEEKS
     Route: 058
  7. PROZAC [Concomitant]
     Active Substance: FLUOXETINE HYDROCHLORIDE
     Dosage: 1 TABLET BY MOUTH EVERY DAY IN THE MORNING
     Route: 048
  8. LAMIGTAL [Concomitant]
     Route: 048
  9. TURMERIC [Concomitant]
     Active Substance: HERBALS\TURMERIC
     Dosage: 2 CAPSULES BY MOUTH
     Route: 048
  10. MAGNESIUM GLYCINATE [Concomitant]
     Active Substance: MAGNESIUM GLYCINATE
     Dosage: 2 TABLETS BY MOUTH
     Route: 048
  11. ZYPREXA [Concomitant]
     Active Substance: OLANZAPINE
     Route: 048

REACTIONS (4)
  - Product prescribing issue [Unknown]
  - Blood glucose increased [Unknown]
  - Metabolic function test abnormal [Unknown]
  - Glycosylated haemoglobin increased [Unknown]

NARRATIVE: CASE EVENT DATE: 20210119
